FAERS Safety Report 9465291 (Version 2)
Quarter: 2013Q3

REPORT INFORMATION
  Report Type: Spontaneous
  Country: US (occurrence: US)
  Receive Date: 20130820
  Receipt Date: 20130906
  Transmission Date: 20140515
  Serious: Yes (Life-Threatening, Other)
  Sender: FDA-Public Use
  Company Number: US-009507513-1308USA006390

PATIENT
  Age: 65 Year
  Sex: Male

DRUGS (11)
  1. TEMODAR [Suspect]
     Indication: LUNG NEOPLASM MALIGNANT
     Dosage: 75MG PER METER SQUARED FOR 21 DAYS ON AND 1 WEEK OFF
     Route: 048
  2. BACTRIM [Concomitant]
  3. BUDESONIDE [Concomitant]
  4. ALBUTEROL (+) IPRATROPIUM BROMIDE [Concomitant]
  5. CLARITIN [Concomitant]
     Route: 048
  6. COLACE [Concomitant]
  7. COMBIVENT [Concomitant]
  8. MORPHINE [Concomitant]
  9. OMEPRAZOLE [Concomitant]
  10. ZOFRAN [Concomitant]
  11. POTASSIUM (UNSPECIFIED) [Concomitant]

REACTIONS (1)
  - Hepatic cancer [Unknown]
